FAERS Safety Report 16796712 (Version 3)
Quarter: 2020Q1

REPORT INFORMATION
  Report Type: Report from Study
  Country: US (occurrence: US)
  Receive Date: 20190911
  Receipt Date: 20200310
  Transmission Date: 20200409
  Serious: Yes (Hospitalization)
  Sender: FDA-Public Use
  Company Number: US-CELGENEUS-USA-20190901763

PATIENT
  Age: 77 Year
  Sex: Male
  Weight: 81 kg

DRUGS (14)
  1. ERGOCALCIFEROL (D2) [Concomitant]
     Indication: VITAMIN D DEFICIENCY
     Dosage: 1 CAPSULE X 1 X 1 WEEKS
     Route: 048
     Dates: start: 2009
  2. ACYCLOVIR. [Concomitant]
     Active Substance: ACYCLOVIR
     Indication: PROPHYLAXIS
     Dosage: 400 MG X 2 X 1 DAYS
     Route: 048
     Dates: start: 20190718
  3. FEDRATINIB [Suspect]
     Active Substance: FEDRATINIB
     Dosage: 300 MG X 1 X 1 DAYS
     Route: 048
     Dates: start: 20190904, end: 20190917
  4. ACETAMINOPHEN. [Concomitant]
     Active Substance: ACETAMINOPHEN
     Indication: PREMEDICATION
     Dosage: 650 MG X PRN
     Route: 048
     Dates: start: 20190410
  5. DIPHENHYDRAMINE. [Concomitant]
     Active Substance: DIPHENHYDRAMINE
     Indication: PREMEDICATION
     Dosage: 25 MG X PRN
     Route: 048
     Dates: start: 20190410
  6. APIXABAN [Concomitant]
     Active Substance: APIXABAN
     Indication: EMBOLISM
     Dosage: 2.5 MG X 2 X 1 DAYS
     Route: 048
     Dates: start: 201811
  7. SILDENAFIL CITRATE. [Concomitant]
     Active Substance: SILDENAFIL CITRATE
     Indication: ERECTILE DYSFUNCTION
     Dosage: 100 MG X PRN
     Route: 048
     Dates: start: 201807
  8. ALLOPURINOL. [Concomitant]
     Active Substance: ALLOPURINOL
     Dosage: 100 MG X 1 X 1 DAYS
     Route: 048
     Dates: start: 20190725
  9. ALOGLIPTIN. [Concomitant]
     Active Substance: ALOGLIPTIN
     Indication: TYPE 2 DIABETES MELLITUS
     Dosage: 12.5 MG X 1 X 1 DAYS
     Route: 048
     Dates: start: 2018
  10. METFORMIN [Concomitant]
     Active Substance: METFORMIN HYDROCHLORIDE
     Indication: TYPE 2 DIABETES MELLITUS
     Dosage: 500 MG X 2 X 1 DAYS
     Route: 048
     Dates: start: 201607, end: 20190821
  11. OXYCODONE-ACETAMINOPHEN 5-325 [Concomitant]
     Active Substance: ACETAMINOPHEN\OXYCODONE HYDROCHLORIDE
     Indication: GOUT
     Dosage: 1 TABLET X PRN
     Route: 048
     Dates: start: 20190721
  12. FEDRATINIB [Suspect]
     Active Substance: FEDRATINIB
     Indication: MYELOFIBROSIS
     Dosage: 400 MG X 1 X 1 DAYS
     Route: 048
     Dates: start: 20190816, end: 20190816
  13. ALLOPURINOL. [Concomitant]
     Active Substance: ALLOPURINOL
     Indication: GOUT
     Dosage: 150 MG X 1 X 1 DAYS
     Route: 048
     Dates: start: 2005, end: 2019
  14. ONDANSETRON [Concomitant]
     Active Substance: ONDANSETRON
     Indication: PROPHYLAXIS
     Dosage: 4 MG X PRN
     Route: 048
     Dates: start: 20190821

REACTIONS (1)
  - Hyperkalaemia [Recovered/Resolved]

NARRATIVE: CASE EVENT DATE: 20190826
